FAERS Safety Report 7485796-7 (Version None)
Quarter: 2011Q2

REPORT INFORMATION
  Report Type: 
  Country: None (occurrence: None)
  Receive Date: 20110517
  Receipt Date: 20110217
  Transmission Date: 20111010
  Serious: Yes (Other)
  Sender: FDA-Public Use
  Company Number: US-BAYER-2011-008075

PATIENT
  Age: 60 Year
  Sex: Male

DRUGS (3)
  1. TRASYLOL [Suspect]
     Indication: MITRAL VALVE REPAIR
  2. TRASYLOL [Suspect]
     Indication: CORONARY ARTERY BYPASS
     Dosage: UNK
     Route: 042
  3. TRASYLOL [Suspect]
     Indication: CARDIAC OPERATION

REACTIONS (10)
  - UNEVALUABLE EVENT [None]
  - DISABILITY [None]
  - DEFORMITY [None]
  - STRESS [None]
  - PAIN [None]
  - RENAL FAILURE ACUTE [None]
  - CONDITION AGGRAVATED [None]
  - RENAL INJURY [None]
  - ANXIETY [None]
  - INJURY [None]
